FAERS Safety Report 5497417-3 (Version None)
Quarter: 2007Q4

REPORT INFORMATION
  Report Type: 
  Country: None (occurrence: None)
  Receive Date: 20071025
  Receipt Date: 20070611
  Transmission Date: 20080405
  Serious: No
  Sender: FDA-Public Use
  Company Number: US-BRISTOL-MYERS SQUIBB COMPANY-13810882

PATIENT
  Age: 74 Year
  Sex: Male

DRUGS (1)
  1. METFORMIN HCL [Suspect]
     Route: 048

REACTIONS (1)
  - DIARRHOEA [None]
